FAERS Safety Report 8506824-3 (Version None)
Quarter: 2012Q3

REPORT INFORMATION
  Report Type: 
  Country: None (occurrence: None)
  Receive Date: 20120712
  Receipt Date: 20120704
  Transmission Date: 20120928
  Serious: Yes (Hospitalization)
  Sender: FDA-Public Use
  Company Number: JP-VERTEX PHARMACEUTICALS INC.-AE-2012-001917

PATIENT
  Sex: Female

DRUGS (15)
  1. NORVASC [Concomitant]
     Route: 048
  2. OMEPRAZOLE [Concomitant]
     Route: 048
  3. PEGINTERFERON ALFA-2B [Concomitant]
     Indication: HEPATITIS C
     Route: 058
     Dates: start: 20120119, end: 20120123
  4. REBETOL [Concomitant]
     Route: 048
     Dates: start: 20120419, end: 20120425
  5. NORVASC [Concomitant]
     Route: 048
  6. PEGINTERFERON ALFA-2B [Concomitant]
     Route: 058
     Dates: start: 20120202
  7. SOLDEM 1 [Concomitant]
     Dates: start: 20120123, end: 20120125
  8. REBETOL [Concomitant]
     Indication: HEPATITIS C
     Route: 048
     Dates: start: 20120119, end: 20120123
  9. REBETOL [Concomitant]
     Route: 048
     Dates: start: 20120322, end: 20120418
  10. MUCOSTA [Concomitant]
     Route: 048
     Dates: start: 20120308
  11. VEEN D [Concomitant]
     Dates: start: 20120124, end: 20120127
  12. PEGINTERFERON ALFA-2B [Concomitant]
     Route: 058
     Dates: start: 20120209
  13. TELAVIC (TELAPREVIR) [Suspect]
     Indication: HEPATITIS C
     Route: 048
     Dates: start: 20120119, end: 20120123
  14. PEGINTERFERON ALFA-2B [Concomitant]
     Route: 058
     Dates: end: 20120419
  15. REBETOL [Concomitant]
     Route: 048
     Dates: start: 20120201, end: 20120321

REACTIONS (1)
  - BLOOD CREATININE INCREASED [None]
